FAERS Safety Report 4639331-9 (Version None)
Quarter: 2005Q2

REPORT INFORMATION
  Report Type: 
  Country: None (occurrence: None)
  Receive Date: 20050418
  Receipt Date: 20050412
  Transmission Date: 20051028
  Serious: Yes (Other)
  Sender: FDA-Public Use
  Company Number: 2005058347

PATIENT
  Age: 70 Year
  Sex: Female
  Weight: 74.3899 kg

DRUGS (3)
  1. LIPITOR [Suspect]
     Indication: BLOOD CHOLESTEROL INCREASED
     Dosage: 20 MG (20 MG, 1 IN 1 D)
  2. IRBESARTAN [Concomitant]
  3. ASPIRIN [Concomitant]

REACTIONS (3)
  - TACHYCARDIA [None]
  - VENTRICULAR EXTRASYSTOLES [None]
  - WEIGHT DECREASED [None]
